FAERS Safety Report 16022957 (Version 1)
Quarter: 2019Q1

REPORT INFORMATION
  Report Type: Spontaneous
  Country: TR (occurrence: TR)
  Receive Date: 20190301
  Receipt Date: 20190301
  Transmission Date: 20190418
  Serious: Yes (Other)
  Sender: FDA-Public Use
  Company Number: PHHY2019TR045015

PATIENT
  Age: 1 Year
  Sex: Female

DRUGS (4)
  1. TACROLIMUS. [Suspect]
     Active Substance: TACROLIMUS
     Indication: LIVER TRANSPLANT
     Dosage: 0.15 MG/KG, QD (0.15 MG/KG/DAY AND STARTED ON POSTTRANSPLANT DAY 3)
     Route: 065
  2. MYCOPHENOLATE MOFETIL. [Suspect]
     Active Substance: MYCOPHENOLATE MOFETIL
     Indication: IMMUNOSUPPRESSANT DRUG THERAPY
  3. TACROLIMUS. [Suspect]
     Active Substance: TACROLIMUS
     Indication: IMMUNOSUPPRESSANT DRUG THERAPY
  4. MYCOPHENOLATE MOFETIL. [Suspect]
     Active Substance: MYCOPHENOLATE MOFETIL
     Indication: LIVER TRANSPLANT
     Dosage: 20 MG/KG, QD (STARTED PREOPERATIVELY AT 20 MG/KG/DAY)
     Route: 065

REACTIONS (10)
  - Acidosis [Recovered/Resolved]
  - Renal tubular acidosis [Unknown]
  - Hypokalaemia [Unknown]
  - Hyperchloraemia [Unknown]
  - Diarrhoea [Recovered/Resolved]
  - Eosinophilic oesophagitis [Unknown]
  - Duodenitis [Unknown]
  - Food allergy [Unknown]
  - Dermatitis atopic [Unknown]
  - Hypoalbuminaemia [Unknown]
